FAERS Safety Report 7462636-3 (Version None)
Quarter: 2011Q2

REPORT INFORMATION
  Report Type: 
  Country: None (occurrence: None)
  Receive Date: 20110506
  Receipt Date: 20100908
  Transmission Date: 20111010
  Serious: Yes (Other)
  Sender: FDA-Public Use
  Company Number: US-BAYER-200940978NA

PATIENT
  Age: 18 Year
  Sex: Female
  Weight: 94.331 kg

DRUGS (7)
  1. YAZ [Suspect]
     Indication: ORAL CONTRACEPTION
     Dosage: 1 DF (DAILY DOSE), QD, ORAL
     Route: 048
     Dates: start: 20090312, end: 20090501
  2. OXYCODONE HCL AND ACETAMINOPHEN [Concomitant]
     Dosage: UNK
     Route: 048
     Dates: start: 20090422
  3. PERCOCET [Concomitant]
     Dosage: UNK
     Dates: end: 20090422
  4. HYDROCODONE BITARTRATE AND ACETAMINOPHEN [Concomitant]
     Dosage: UNK
     Route: 048
     Dates: start: 20090416
  5. LORTAB [Concomitant]
  6. PRENATAL VITAMINS [Concomitant]
     Dosage: UNK
     Dates: end: 20090422
  7. IBUPROFEN [Concomitant]
     Dosage: UNK
     Dates: end: 20090422

REACTIONS (9)
  - DIARRHOEA [None]
  - CHOLECYSTITIS CHRONIC [None]
  - HEPATIC ENZYME ABNORMAL [None]
  - CHOLELITHIASIS [None]
  - VOMITING [None]
  - MOOD ALTERED [None]
  - BILIARY COLIC [None]
  - ABDOMINAL PAIN UPPER [None]
  - ABDOMINAL PAIN [None]
